FAERS Safety Report 7675477-9 (Version None)
Quarter: 2011Q3

REPORT INFORMATION
  Report Type: 
  Country: None (occurrence: None)
  Receive Date: 20110810
  Receipt Date: 20060509
  Transmission Date: 20111222
  Serious: Yes (Other)
  Sender: FDA-Public Use
  Company Number: TW-BAXTER-2011BH025782

PATIENT
  Age: 35 Year
  Sex: Male

DRUGS (2)
  1. ANTIVIRALS FOR SYSTEMIC USE [Concomitant]
     Indication: HIV INFECTION
     Route: 065
  2. FLUCONAZOLE [Suspect]
     Indication: CRYPTOCOCCOSIS
     Route: 065

REACTIONS (1)
  - PRIMARY ADRENAL INSUFFICIENCY [None]
